FAERS Safety Report 8181294-6 (Version None)
Quarter: 2012Q1

REPORT INFORMATION
  Report Type: 
  Country: None (occurrence: None)
  Receive Date: 20120302
  Receipt Date: 20120227
  Transmission Date: 20120608
  Serious: Yes (Death, Hospitalization)
  Sender: FDA-Public Use
  Company Number: DE-ACTELION-A-US2011-57395

PATIENT

DRUGS (2)
  1. AMBRISENTAN [Suspect]
  2. VENTAVIS [Suspect]
     Indication: PRODUCT USED FOR UNKNOWN INDICATION
     Dosage: 5 UG, UNK, Q4HR
     Route: 055
     Dates: start: 20101112

REACTIONS (8)
  - RESPIRATORY DISTRESS [None]
  - OROPHARYNGEAL PAIN [None]
  - DEATH [None]
  - NASOPHARYNGITIS [None]
  - CONDITION AGGRAVATED [None]
  - DYSPNOEA [None]
  - GLOSSODYNIA [None]
  - DRUG INEFFECTIVE [None]
